FAERS Safety Report 5588483-5 (Version None)
Quarter: 2008Q1

REPORT INFORMATION
  Report Type: 
  Country: None (occurrence: None)
  Receive Date: 20080111
  Receipt Date: 20080110
  Transmission Date: 20080703
  Serious: Yes (Death)
  Sender: FDA-Public Use
  Company Number: US-ASTRAZENECA-2008AC00078

PATIENT
  Age: 76 Year
  Sex: Female

DRUGS (6)
  1. ATENOLOL [Suspect]
     Route: 048
  2. DILTIAZEM HCL [Suspect]
     Route: 048
  3. THIAZOLIDINEDIONE [Suspect]
  4. CLOPIDOGREL [Suspect]
  5. THIAZIDE [Suspect]
  6. THYROID PREPARATION [Suspect]

REACTIONS (1)
  - MEDICATION ERROR [None]
